FAERS Safety Report 10959013 (Version 1)
Quarter: 2015Q1

REPORT INFORMATION
  Report Type: Spontaneous
  Country: US (occurrence: US)
  Receive Date: 20150327
  Receipt Date: 20150327
  Transmission Date: 20150721
  Serious: Yes (Death)
  Sender: FDA-Public Use
  Company Number: US-CIPLA LTD.-2015US02339

PATIENT

DRUGS (4)
  1. ZOLPIDEM TARTARATE [Suspect]
     Active Substance: ZOLPIDEM TARTRATE
  2. LISINOPRIL. [Suspect]
     Active Substance: LISINOPRIL
  3. METOPROLOL [Suspect]
     Active Substance: METOPROLOL
  4. AMLODIPINE [Suspect]
     Active Substance: AMLODIPINE BESYLATE

REACTIONS (1)
  - Completed suicide [Fatal]
